FAERS Safety Report 21389056 (Version 2)
Quarter: 2022Q4

REPORT INFORMATION
  Report Type: Spontaneous
  Country: AF (occurrence: AF)
  Receive Date: 20220929
  Receipt Date: 20221013
  Transmission Date: 20230112
  Serious: Yes (Life-Threatening, Hospitalization, Other)
  Sender: FDA-Public Use
  Company Number: BE-BAXTER-2022BAX019445

PATIENT
  Age: 6 Year
  Sex: Female
  Weight: 14 kg

DRUGS (7)
  1. DEXTROSE MONOHYDRATE [Suspect]
     Active Substance: DEXTROSE MONOHYDRATE
     Indication: Alanine aminotransferase increased
     Dosage: 250 ML, ONCE DAILY, FLEX. BAG, PVC FREE, TOTAL NUMBER OF BAGS ADMINISTERED: 14 BAGS.
     Route: 042
     Dates: start: 20220616, end: 20220629
  2. DEXTROSE MONOHYDRATE [Suspect]
     Active Substance: DEXTROSE MONOHYDRATE
     Indication: Hypertransaminasaemia
  3. BEDAQUILINE [Concomitant]
     Active Substance: BEDAQUILINE
     Indication: Tuberculosis
     Dosage: 50 MG, 3 TIMES IN A WEEK
     Route: 048
     Dates: start: 20220511, end: 20220620
  4. CLOFAZIMINE [Concomitant]
     Active Substance: CLOFAZIMINE
     Indication: Tuberculosis
     Dosage: 100 MG, EVERY OTHER DAY (EOD)
     Route: 048
     Dates: start: 20220511, end: 20220620
  5. PYRAZINAMIDE [Concomitant]
     Active Substance: PYRAZINAMIDE
     Indication: Tuberculosis
     Dosage: 450 MG, ONCE DAILY
     Route: 048
     Dates: start: 20220511, end: 20220620
  6. LEVOFLOXACIN [Concomitant]
     Active Substance: LEVOFLOXACIN
     Indication: Tuberculosis
     Dosage: 300 MG, ONCE DAILY
     Route: 048
     Dates: start: 20220511, end: 20220620
  7. LINEZOLID [Concomitant]
     Active Substance: LINEZOLID
     Indication: Tuberculosis
     Dosage: 150 MG, ONCE DAILY
     Route: 048
     Dates: start: 20220511, end: 20220620

REACTIONS (3)
  - Anaphylactoid reaction [Recovered/Resolved]
  - Pyrexia [Recovered/Resolved]
  - Chills [Recovered/Resolved]

NARRATIVE: CASE EVENT DATE: 20220619
